FAERS Safety Report 17734036 (Version 3)
Quarter: 2020Q3

REPORT INFORMATION
  Report Type: Spontaneous
  Country: US (occurrence: US)
  Receive Date: 20200501
  Receipt Date: 20200706
  Transmission Date: 20201102
  Serious: No
  Sender: FDA-Public Use
  Company Number: US-PFIZER INC-2020174780

PATIENT
  Age: 43 Year
  Sex: Female

DRUGS (17)
  1. XELJANZ [Suspect]
     Active Substance: TOFACITINIB CITRATE
     Indication: COLITIS ULCERATIVE
     Dosage: 5 MG, 2X/DAY
     Route: 048
     Dates: start: 201909
  2. DIGESTIVE ENZYMES [Concomitant]
     Active Substance: UNSPECIFIED INGREDIENT
     Dosage: 220 MG
  3. MAGNESIUM [Concomitant]
     Active Substance: MAGNESIUM
     Dosage: 400 MG
  4. PROBIOTIC ACIDOPHILUS [LACTOBACILLUS ACIDOPHILUS] [Concomitant]
     Dosage: UNK
  5. GINKGO BILOBA [Concomitant]
     Active Substance: GINKGO
     Dosage: 120 MG
  6. QVAR REDIHALER [Concomitant]
     Active Substance: BECLOMETHASONE DIPROPIONATE
     Dosage: 40 UG (HFA AEROBA)
  7. COLLAGEN [Concomitant]
     Active Substance: COLLAGEN
     Dosage: UNK (125?740 MG CAPSULE)
  8. FISH OIL [Concomitant]
     Active Substance: FISH OIL
     Dosage: UNK (100?150 MG CAPSULE)
  9. LACTASE [Concomitant]
     Active Substance: LACTASE
     Dosage: 3000 IU
  10. TURMERIC [CURCUMA LONGA] [Concomitant]
     Active Substance: HERBALS\TURMERIC
     Dosage: 400 MG
  11. MUCINEX [Concomitant]
     Active Substance: GUAIFENESIN
     Dosage: 1200 MG
  12. NORCO [Concomitant]
     Active Substance: ACETAMINOPHEN\HYDROCODONE BITARTRATE
     Dosage: UNK (5 MG?325 MG TABLET)
  13. VALTREX [Concomitant]
     Active Substance: VALACYCLOVIR HYDROCHLORIDE
     Dosage: 1000 MG
  14. PANTOPRAZOLE SODIUM. [Concomitant]
     Active Substance: PANTOPRAZOLE SODIUM
     Dosage: 20 MG
  15. VALTREX [Concomitant]
     Active Substance: VALACYCLOVIR HYDROCHLORIDE
     Dosage: 500 MG
  16. FLONASE ALLERGY RELIEF [Concomitant]
     Active Substance: FLUTICASONE PROPIONATE
     Dosage: UNK
  17. GAS?X [Concomitant]
     Active Substance: DIMETHICONE
     Dosage: 125 MG

REACTIONS (10)
  - Diarrhoea [Unknown]
  - Constipation [Unknown]
  - Feeling abnormal [Unknown]
  - Abdominal distension [Unknown]
  - Drug ineffective [Unknown]
  - Flushing [Unknown]
  - Abdominal pain [Unknown]
  - Urinary tract infection [Unknown]
  - Bacterial vulvovaginitis [Unknown]
  - Off label use [Unknown]

NARRATIVE: CASE EVENT DATE: 2020
